FAERS Safety Report 17857024 (Version 1)
Quarter: 2020Q2

REPORT INFORMATION
  Report Type: Spontaneous
  Country: US (occurrence: US)
  Receive Date: 20200603
  Receipt Date: 20200603
  Transmission Date: 20200714
  Serious: No
  Sender: FDA-Public Use
  Company Number: US-ROCHE-2561291

PATIENT
  Age: 24 Year
  Sex: Female

DRUGS (8)
  1. CYCLOPHOSPHAMIDE. [Concomitant]
     Active Substance: CYCLOPHOSPHAMIDE
  2. PREDNISONE. [Concomitant]
     Active Substance: PREDNISONE
  3. TACROLIMUS. [Suspect]
     Active Substance: TACROLIMUS
     Indication: HEART TRANSPLANT
     Route: 065
  4. RITUXIMAB. [Concomitant]
     Active Substance: RITUXIMAB
     Route: 065
  5. VINCRISTINE [Concomitant]
     Active Substance: VINCRISTINE
  6. ETOPOSIDE. [Concomitant]
     Active Substance: ETOPOSIDE
  7. VALGANCICLOVIR. [Suspect]
     Active Substance: VALGANCICLOVIR
     Indication: HEART TRANSPLANT
     Route: 048
  8. VALGANCICLOVIR. [Suspect]
     Active Substance: VALGANCICLOVIR
     Route: 048

REACTIONS (1)
  - Leukopenia [Unknown]
